FAERS Safety Report 8220681-4 (Version None)
Quarter: 2012Q1

REPORT INFORMATION
  Report Type: 
  Country: None (occurrence: None)
  Receive Date: 20120320
  Receipt Date: 20120308
  Transmission Date: 20120608
  Serious: Yes (Other)
  Sender: FDA-Public Use
  Company Number: CH-ELI_LILLY_AND_COMPANY-CH201203003848

PATIENT
  Age: 34 Year
  Sex: Female

DRUGS (8)
  1. GABAPENTIN [Concomitant]
     Indication: MYOTONIA
     Dosage: 3200 MG, QD
  2. CYMBALTA [Suspect]
     Indication: DEPRESSION
     Dosage: 60 MG, QD
  3. CALCIMAGON D3 [Concomitant]
     Dosage: 500 MG, QD
     Dates: end: 20120118
  4. PHENYTOIN [Concomitant]
     Indication: MYOTONIA
     Dosage: 350 MG, QD
  5. OMEPRAZOLE [Concomitant]
     Dosage: 20 MG, UNK
  6. PREDNISONE [Concomitant]
     Indication: MYOTONIA
     Dosage: 5 MG, QD
  7. PREDNISONE [Concomitant]
     Dosage: 10 MG, QD
  8. AZATHIOPRINE SODIUM [Concomitant]
     Indication: MYOTONIA
     Dosage: 125 MG, QD
     Dates: end: 20120118

REACTIONS (1)
  - MATERNAL EXPOSURE DURING PREGNANCY [None]
